FAERS Safety Report 9266864 (Version 1)
Quarter: 2013Q2

REPORT INFORMATION
  Report Type: Spontaneous
  Country: CA (occurrence: CA)
  Receive Date: 20130501
  Receipt Date: 20130501
  Transmission Date: 20140414
  Serious: Yes (Hospitalization, Other)
  Sender: FDA-Public Use
  Company Number: CA-RB-053054-13

PATIENT
  Age: 51 Year
  Sex: Male

DRUGS (1)
  1. SUBOXONE TABLET [Suspect]
     Indication: PAIN
     Route: 060
     Dates: start: 20130403, end: 201304

REACTIONS (4)
  - Off label use [Recovered/Resolved]
  - Aphthous stomatitis [Recovering/Resolving]
  - Loss of consciousness [Recovered/Resolved]
  - Drug ineffective for unapproved indication [Recovered/Resolved]
